FAERS Safety Report 20343657 (Version 1)
Quarter: 2022Q1

REPORT INFORMATION
  Report Type: Spontaneous
  Country: CA (occurrence: CA)
  Receive Date: 20220118
  Receipt Date: 20220118
  Transmission Date: 20220423
  Serious: Yes (Other)
  Sender: FDA-Public Use
  Company Number: CA-JNJFOC-20220122922

PATIENT
  Age: 28 Year
  Sex: Male
  Weight: 67 kg

DRUGS (5)
  1. REMICADE [Suspect]
     Active Substance: INFLIXIMAB
     Indication: Crohn^s disease
     Route: 042
  2. AZATHIOPRINE [Concomitant]
     Active Substance: AZATHIOPRINE
  3. MORPHINE [Concomitant]
     Active Substance: MORPHINE
     Indication: Myalgia
  4. MORPHINE [Concomitant]
     Active Substance: MORPHINE
     Indication: Arthralgia
  5. PREDNISONE [Concomitant]
     Active Substance: PREDNISONE
     Route: 048

REACTIONS (9)
  - Weight increased [Unknown]
  - Intestinal stenosis [Unknown]
  - Myalgia [Unknown]
  - Arthralgia [Unknown]
  - Condition aggravated [Unknown]
  - Nausea [Unknown]
  - Off label use [Unknown]
  - Intentional product use issue [Unknown]
  - Inappropriate schedule of product administration [Unknown]
